FAERS Safety Report 9631063 (Version 2)
Quarter: 2013Q4

REPORT INFORMATION
  Report Type: Spontaneous
  Country: IN (occurrence: IN)
  Receive Date: 20131018
  Receipt Date: 20131018
  Transmission Date: 20140711
  Serious: Yes (Other)
  Sender: FDA-Public Use
  Company Number: IN-PFIZER INC-2013293973

PATIENT
  Age: 14 Year
  Sex: Female

DRUGS (9)
  1. ATROPINE SULFATE [Suspect]
     Indication: POISONING
     Dosage: 5 MG/HR
     Route: 042
  2. DIAZEPAM [Suspect]
     Indication: SEDATION
     Dosage: 10 MG, 2X/DAY
     Route: 042
  3. HALOPERIDOL [Suspect]
     Indication: SEDATION
     Dosage: 2-10 MG AS REQUIRED
  4. MORPHINE HCL [Suspect]
     Indication: SEDATION
     Dosage: 2 MG/HR
     Route: 042
  5. PROPOFOL [Suspect]
     Indication: SEDATION
     Dosage: UNK
     Route: 042
  6. PRALIDOXIME CHLORIDE [Suspect]
     Indication: ACCIDENTAL POISONING
     Dosage: 1 G, 3X/DAY
     Route: 042
  7. MIDAZOLAM [Suspect]
     Indication: SEDATION
     Dosage: 2 MG/HR
     Route: 042
  8. PROMETHAZINE [Suspect]
     Indication: SEDATION
     Dosage: 25 MG, 3X/DAY
     Route: 042
  9. DEXMEDETOMIDINE [Suspect]
     Indication: SEDATION
     Dosage: UNK

REACTIONS (4)
  - Psychotic disorder [Recovered/Resolved]
  - Agitation [Recovered/Resolved]
  - Hyperhidrosis [Recovered/Resolved]
  - Catatonia [Recovered/Resolved]
